FAERS Safety Report 6464225-6 (Version None)
Quarter: 2009Q4

REPORT INFORMATION
  Report Type: 
  Country: None (occurrence: None)
  Receive Date: 20091201
  Receipt Date: 20091126
  Transmission Date: 20100525
  Serious: Yes (Death, Hospitalization)
  Sender: FDA-Public Use
  Company Number: ES-ELI_LILLY_AND_COMPANY-ES200911004955

PATIENT
  Sex: Female
  Weight: 61 kg

DRUGS (3)
  1. PEMETREXED [Suspect]
     Indication: NON-SMALL CELL LUNG CANCER
     Dosage: 500 MG/M2, ONCE EVERY 21 DAYS
     Route: 042
     Dates: start: 20091022
  2. FOLIC ACID [Concomitant]
     Indication: PROPHYLAXIS
     Dates: start: 20091013
  3. VITAMIN B-12 [Concomitant]
     Indication: PROPHYLAXIS
     Dates: start: 20091022

REACTIONS (1)
  - CARDIO-RESPIRATORY ARREST [None]
